FAERS Safety Report 10448057 (Version 2)
Quarter: 2015Q1

REPORT INFORMATION
  Report Type: Spontaneous
  Country: US (occurrence: US)
  Receive Date: 20140911
  Receipt Date: 20150105
  Transmission Date: 20150720
  Serious: Yes (Death, Hospitalization, Other)
  Sender: FDA-Public Use
  Company Number: US-PFIZER INC-2014249875

PATIENT
  Age: 63 Year
  Sex: Male

DRUGS (3)
  1. DEPO-TESTOSTERONE [Suspect]
     Active Substance: TESTOSTERONE CYPIONATE
     Indication: BLOOD TESTOSTERONE DECREASED
     Dosage: UNK
     Dates: start: 200809
  2. TESTOSTERONE CIPIONATE [Suspect]
     Active Substance: TESTOSTERONE
     Indication: LIBIDO DECREASED
  3. TESTOSTERONE CIPIONATE [Suspect]
     Active Substance: TESTOSTERONE
     Indication: HORMONE REPLACEMENT THERAPY
     Dosage: UNK, EVERY 3 WEEKS
     Dates: start: 2008, end: 2012

REACTIONS (8)
  - Cardiac arrest [Fatal]
  - Nausea [Unknown]
  - Myocardial infarction [Fatal]
  - Loss of consciousness [Unknown]
  - Chest pain [Unknown]
  - Brain injury [Unknown]
  - Cardiogenic shock [Unknown]
  - Dyspnoea [Unknown]

NARRATIVE: CASE EVENT DATE: 201209
